FAERS Safety Report 25839943 (Version 1)
Quarter: 2025Q3

REPORT INFORMATION
  Report Type: Spontaneous
  Country: EU (occurrence: EU)
  Receive Date: 20250924
  Receipt Date: 20250924
  Transmission Date: 20251021
  Serious: Yes (Hospitalization)
  Sender: BAUSCH AND LOMB
  Company Number: None

PATIENT
  Age: 80 Year
  Sex: Female
  Weight: 44 kg

DRUGS (18)
  1. METFORMIN HYDROCHLORIDE [Suspect]
     Active Substance: METFORMIN HYDROCHLORIDE
     Indication: Diabetes mellitus
     Dosage: 1000MG 3X/J
     Route: 048
     Dates: start: 20250731, end: 20250808
  2. METFORMIN HYDROCHLORIDE [Suspect]
     Active Substance: METFORMIN HYDROCHLORIDE
     Dosage: 850MG 3X/J
     Route: 048
     Dates: start: 20250808, end: 20250831
  3. METFORMIN HYDROCHLORIDE [Suspect]
     Active Substance: METFORMIN HYDROCHLORIDE
     Route: 048
  4. INVOKANA [Suspect]
     Active Substance: CANAGLIFLOZIN
     Indication: Diabetes mellitus
     Route: 048
     Dates: end: 20250901
  5. INVOKANA [Suspect]
     Active Substance: CANAGLIFLOZIN
     Route: 048
  6. ASPIRIN [Suspect]
     Active Substance: ASPIRIN
     Indication: Cardiovascular event prophylaxis
     Route: 048
  7. ASPIRIN [Suspect]
     Active Substance: ASPIRIN
     Route: 048
  8. TRULICITY [Suspect]
     Active Substance: DULAGLUTIDE
     Indication: Diabetes mellitus
     Route: 058
     Dates: start: 20210101, end: 20250901
  9. TRULICITY [Suspect]
     Active Substance: DULAGLUTIDE
     Route: 058
  10. DULOXETINE HYDROCHLORIDE [Suspect]
     Active Substance: DULOXETINE HYDROCHLORIDE
     Indication: Depression
     Route: 048
     Dates: start: 20250826, end: 20250828
  11. DULOXETINE HYDROCHLORIDE [Suspect]
     Active Substance: DULOXETINE HYDROCHLORIDE
     Route: 048
     Dates: start: 20250831, end: 20250903
  12. DULOXETINE HYDROCHLORIDE [Suspect]
     Active Substance: DULOXETINE HYDROCHLORIDE
     Route: 048
  13. CLOTIAZEPAM [Suspect]
     Active Substance: CLOTIAZEPAM
     Indication: Seizure
     Route: 048
     Dates: start: 20250826, end: 20250828
  14. CLOTIAZEPAM [Suspect]
     Active Substance: CLOTIAZEPAM
     Route: 048
     Dates: start: 20250831, end: 20250903
  15. CLOTIAZEPAM [Suspect]
     Active Substance: CLOTIAZEPAM
     Route: 048
  16. LANSOPRAZOLE [Suspect]
     Active Substance: LANSOPRAZOLE
     Indication: Product used for unknown indication
     Route: 048
     Dates: start: 20250808
  17. ATORVASTATIN [Concomitant]
     Active Substance: ATORVASTATIN
     Indication: Cardiovascular event prophylaxis
     Route: 048
  18. ERGOCALCIFEROL [Concomitant]
     Active Substance: ERGOCALCIFEROL
     Indication: Vitamin supplementation
     Route: 048

REACTIONS (1)
  - Respiratory alkalosis [Recovered/Resolved]

NARRATIVE: CASE EVENT DATE: 20250830
